FAERS Safety Report 8934733 (Version 1)
Quarter: 2012Q4

REPORT INFORMATION
  Report Type: 
  Country: CA (occurrence: CA)
  Receive Date: 20121129
  Receipt Date: 20121129
  Transmission Date: 20130627
  Serious: Yes (Other)
  Sender: FDA-Public Use
  Company Number: CA-ABBOTT-12P-028-1011777-00

PATIENT
  Sex: Male

DRUGS (10)
  1. LOPINAVIR/RITONAVIR [Suspect]
     Indication: HIV INFECTION
  2. VINBLASTINE [Suspect]
     Indication: HIV INFECTION
  3. VINBLASTINE [Suspect]
     Indication: HODGKIN^S DISEASE
  4. DOXORUBICIN [Suspect]
     Indication: HIV INFECTION
  5. DOXORUBICIN [Suspect]
     Indication: HODGKIN^S DISEASE
  6. BLEOMYCIN [Suspect]
     Indication: HIV INFECTION
  7. BLEOMYCIN [Suspect]
     Indication: HODGKIN^S DISEASE
  8. DACARBAZINE [Suspect]
     Indication: HIV INFECTION
  9. DACARBAZINE [Suspect]
     Indication: HODGKIN^S DISEASE
  10. EMTRICITABINE [Suspect]
     Indication: HIV INFECTION

REACTIONS (3)
  - Neurotoxicity [Unknown]
  - Gastrointestinal hypomotility [Recovered/Resolved]
  - Intestinal perforation [Recovered/Resolved]
